FAERS Safety Report 7312169-X (Version None)
Quarter: 2011Q1

REPORT INFORMATION
  Report Type: 
  Country: None (occurrence: None)
  Receive Date: 20110224
  Receipt Date: 20110217
  Transmission Date: 20110831
  Serious: Yes (Hospitalization)
  Sender: FDA-Public Use
  Company Number: A0875883A

PATIENT
  Age: 70 Year
  Sex: Female

DRUGS (6)
  1. GLUCOVANCE [Concomitant]
  2. MONOPRIL [Concomitant]
  3. PROCARDIA [Concomitant]
  4. CELEBREX [Concomitant]
  5. AVANDIA [Suspect]
     Indication: DIABETES MELLITUS
     Dosage: 4MG PER DAY
     Route: 048
     Dates: start: 19991111, end: 20011206
  6. VIOXX [Concomitant]

REACTIONS (7)
  - CEREBROVASCULAR ACCIDENT [None]
  - CARDIAC FAILURE CONGESTIVE [None]
  - CORONARY ARTERY DISEASE [None]
  - CARDIAC DISORDER [None]
  - CARDIAC PACEMAKER INSERTION [None]
  - TRANSIENT ISCHAEMIC ATTACK [None]
  - AORTIC VALVE STENOSIS [None]
